FAERS Safety Report 4566551-4 (Version None)
Quarter: 2005Q1

REPORT INFORMATION
  Report Type: 
  Country: None (occurrence: None)
  Receive Date: 20050126
  Receipt Date: 20050126
  Transmission Date: 20050727
  Serious: Yes (Other)
  Sender: FDA-Public Use
  Company Number: None

PATIENT
  Sex: Male

DRUGS (1)
  1. TIZANIDINE HCL [Suspect]
     Indication: QUADRIPARESIS
     Dosage: CHANGE TO ZANAFLEX 73 MN [LIFETIME]

REACTIONS (1)
  - MUSCLE SPASMS [None]
